FAERS Safety Report 4866000-2 (Version None)
Quarter: 2005Q4

REPORT INFORMATION
  Report Type: 
  Country: None (occurrence: None)
  Receive Date: 20051221
  Receipt Date: 20051208
  Transmission Date: 20060501
  Serious: Yes (Death)
  Sender: FDA-Public Use
  Company Number: 200510636BYL

PATIENT
  Age: 79 Year
  Sex: Male

DRUGS (1)
  1. CIPROXAN IV (CIPROFLOXACIN) [Suspect]
     Indication: PNEUMONIA
     Dosage: 600 MG, TOTAL DAILY, INTRAVENOUS DRIP
     Route: 041
     Dates: start: 20041222, end: 20050102

REACTIONS (1)
  - LOSS OF CONSCIOUSNESS [None]
